FAERS Safety Report 11870188 (Version 1)
Quarter: 2015Q4

REPORT INFORMATION
  Report Type: Spontaneous
  Country: US (occurrence: US)
  Receive Date: 20151228
  Receipt Date: 20151228
  Transmission Date: 20160305
  Serious: No
  Sender: FDA-Public Use
  Company Number: US-ASTRAZENECA-2015SF28335

PATIENT
  Age: 23407 Day
  Sex: Male
  Weight: 68 kg

DRUGS (7)
  1. LYRICA [Concomitant]
     Active Substance: PREGABALIN
     Indication: MYALGIA
  2. LYRICA [Concomitant]
     Active Substance: PREGABALIN
     Indication: FIBROMYALGIA
  3. SEVELLA [Concomitant]
     Indication: MYALGIA
  4. SEVELLA [Concomitant]
     Indication: DEPRESSION
  5. SYMBICORT [Suspect]
     Active Substance: BUDESONIDE\FORMOTEROL FUMARATE DIHYDRATE
     Indication: SEASONAL ALLERGY
     Dosage: 160/4.5 MCG, BID
     Route: 055
  6. SYMBICORT [Suspect]
     Active Substance: BUDESONIDE\FORMOTEROL FUMARATE DIHYDRATE
     Indication: SEASONAL ALLERGY
     Dosage: 160/4.5 MCG, 2 PUFFS A DAY
     Route: 055
  7. SYMBICORT [Suspect]
     Active Substance: BUDESONIDE\FORMOTEROL FUMARATE DIHYDRATE
     Indication: SEASONAL ALLERGY
     Dosage: 160/4.5 MCG, 3 PUFFS A DAY
     Route: 055

REACTIONS (9)
  - Lung disorder [Unknown]
  - Intentional product use issue [Unknown]
  - Pulmonary pain [Unknown]
  - Feeling abnormal [Unknown]
  - Condition aggravated [Unknown]
  - Flushing [Unknown]
  - Product use issue [Unknown]
  - Asthenia [Unknown]
  - Hyperhidrosis [Unknown]

NARRATIVE: CASE EVENT DATE: 201511
